FAERS Safety Report 16175091 (Version 3)
Quarter: 2019Q2

REPORT INFORMATION
  Report Type: Spontaneous
  Country: ES (occurrence: ES)
  Receive Date: 20190409
  Receipt Date: 20190416
  Transmission Date: 20190711
  Serious: Yes (Life-Threatening)
  Sender: FDA-Public Use
  Company Number: ES-PFIZER INC-HQWYE952316MAR07

PATIENT
  Age: 48 Year
  Sex: Female
  Weight: 70 kg

DRUGS (6)
  1. ANAGASTRA [Suspect]
     Active Substance: PANTOPRAZOLE SODIUM
     Indication: PEPTIC ULCER
     Dosage: 40 MG, 1X/DAY
     Route: 042
     Dates: start: 20061120, end: 20061230
  2. NEOSIDANTOINA [Suspect]
     Active Substance: PHENYTOIN SODIUM
     Indication: GENERALISED TONIC-CLONIC SEIZURE
     Dosage: 500 MG, 1X/DAY
     Route: 048
     Dates: start: 20061222, end: 20061230
  3. VALPROIC ACID. [Suspect]
     Active Substance: VALPROIC ACID
     Indication: GENERALISED TONIC-CLONIC SEIZURE
     Dosage: UNK
     Route: 065
     Dates: start: 20061120
  4. PHENYTOIN. [Concomitant]
     Active Substance: PHENYTOIN
     Dosage: 450 MG, DAILY
     Route: 042
     Dates: start: 20061215, end: 20061221
  5. FENITOINA RUBIO [Concomitant]
     Indication: GENERALISED TONIC-CLONIC SEIZURE
     Dosage: 450 MILLIGRAM, QD
     Route: 042
     Dates: start: 20061215, end: 20061221
  6. PANTOCARM [Suspect]
     Active Substance: PANTOPRAZOLE
     Indication: PEPTIC ULCER
     Dosage: 40 MILLIGRAM, QD
     Route: 042
     Dates: start: 20061120, end: 20061230

REACTIONS (1)
  - Anaemia [Recovered/Resolved]

NARRATIVE: CASE EVENT DATE: 20061222
